FAERS Safety Report 18583894 (Version 1)
Quarter: 2020Q4

REPORT INFORMATION
  Report Type: Report from Study
  Country: None (occurrence: US)
  Receive Date: 20201207
  Receipt Date: 20201207
  Transmission Date: 20210114
  Serious: Yes (Hospitalization, Other)
  Sender: FDA-Public Use
  Company Number: US-ABBVIE-20K-163-3670898-00

PATIENT
  Age: 64 Year
  Sex: Female

DRUGS (1)
  1. HUMIRA [Suspect]
     Active Substance: ADALIMUMAB
     Indication: RHEUMATOID ARTHRITIS
     Dosage: CITRATE FREE
     Route: 058
     Dates: start: 20200904

REACTIONS (15)
  - Pulmonary fibrosis [Not Recovered/Not Resolved]
  - Heart injury [Unknown]
  - Flank pain [Unknown]
  - Electrocardiogram T wave amplitude decreased [Unknown]
  - Myocardial infarction [Recovered/Resolved]
  - Arteriosclerosis [Unknown]
  - Urinary tract infection [Not Recovered/Not Resolved]
  - Pain [Not Recovered/Not Resolved]
  - Myocardial infarction [Unknown]
  - Myocardial ischaemia [Unknown]
  - Palpitations [Recovered/Resolved]
  - Mucosal induration [Unknown]
  - QRS axis abnormal [Unknown]
  - Blood urine present [Not Recovered/Not Resolved]
  - Asthenia [Recovered/Resolved]

NARRATIVE: CASE EVENT DATE: 20201113
